FAERS Safety Report 7265801-3 (Version None)
Quarter: 2011Q1

REPORT INFORMATION
  Report Type: 
  Country: None (occurrence: None)
  Receive Date: 20110131
  Receipt Date: 20110126
  Transmission Date: 20110831
  Serious: Yes (Other)
  Sender: FDA-Public Use
  Company Number: A0774235A

PATIENT
  Age: 45 Year
  Sex: Male

DRUGS (1)
  1. AVANDIA [Suspect]
     Route: 048
     Dates: start: 19990101, end: 20080101

REACTIONS (6)
  - OEDEMA [None]
  - WEIGHT INCREASED [None]
  - THROMBOSIS [None]
  - MYOCARDIAL INFARCTION [None]
  - PALPITATIONS [None]
  - VISION BLURRED [None]
